FAERS Safety Report 12308945 (Version 1)
Quarter: 2016Q2

REPORT INFORMATION
  Report Type: Spontaneous
  Country: CA (occurrence: CA)
  Receive Date: 20160427
  Receipt Date: 20160427
  Transmission Date: 20160815
  Serious: Yes (Other)
  Sender: FDA-Public Use
  Company Number: CA-BAXTER-2016BAX020675

PATIENT
  Sex: Male

DRUGS (1)
  1. GENTAMICIN 80 MG [Suspect]
     Active Substance: GENTAMICIN
     Indication: PRODUCT USED FOR UNKNOWN INDICATION
     Dosage: (THE DAY HE WAS BORN) AND FOR 7 OR 8 DAYS
     Route: 065

REACTIONS (2)
  - Unresponsive to stimuli [Unknown]
  - Deafness [Unknown]
